FAERS Safety Report 6215784-X (Version None)
Quarter: 2009Q2

REPORT INFORMATION
  Report Type: 
  Country: None (occurrence: None)
  Receive Date: 20090603
  Receipt Date: 20090519
  Transmission Date: 20091009
  Serious: Yes (Death)
  Sender: FDA-Public Use
  Company Number: GB-GENENTECH-282066

PATIENT
  Sex: Female

DRUGS (3)
  1. BEVACIZUMAB [Suspect]
     Indication: OVARIAN EPITHELIAL CANCER
     Dosage: 590 MG, UNK
     Route: 042
     Dates: start: 20081003
  2. PARAPLATIN [Suspect]
     Indication: OVARIAN EPITHELIAL CANCER
     Dosage: 755 MG, UNK
     Route: 042
     Dates: start: 20081003
  3. PACLITAXEL [Suspect]
     Indication: OVARIAN EPITHELIAL CANCER
     Dosage: 315 MG, UNK
     Route: 042
     Dates: start: 20081006

REACTIONS (3)
  - ABDOMINAL PAIN [None]
  - DEATH [None]
  - GENITOURINARY TRACT INFECTION [None]
